FAERS Safety Report 12791586 (Version 8)
Quarter: 2018Q2

REPORT INFORMATION
  Report Type: Spontaneous
  Country: JP (occurrence: JP)
  Receive Date: 20160929
  Receipt Date: 20180409
  Transmission Date: 20180711
  Serious: Yes (Death, Hospitalization, Other)
  Sender: FDA-Public Use
  Company Number: JP-BAYER-2016-177545

PATIENT
  Age: 73 Year
  Sex: Male
  Weight: 54.8 kg

DRUGS (13)
  1. XOFIGO [Suspect]
     Active Substance: RADIUM RA-223 DICHLORIDE
     Indication: HORMONE-REFRACTORY PROSTATE CANCER
     Dosage: 3.36 MBQ (55 KBQ/KG), ONCE
     Route: 042
     Dates: start: 20160830, end: 20160830
  2. XOFIGO [Suspect]
     Active Substance: RADIUM RA-223 DICHLORIDE
     Indication: METASTASES TO BONE
  3. OXINORM [OXYCODONE HYDROCHLORIDE] [Concomitant]
     Dosage: 1 DF, PRN
  4. MAGMITT [Concomitant]
     Active Substance: MAGNESIUM OXIDE
     Dosage: 1 DF, TID
  5. TRAMAL [Concomitant]
     Active Substance: TRAMADOL
     Dosage: 1 DF, QID
     Dates: end: 201609
  6. HACHIAZULE [Concomitant]
     Dosage: UNK UNK, TID
  7. LYRICA [Concomitant]
     Active Substance: PREGABALIN
     Dosage: 1 DF, BID
  8. LYRICA [Concomitant]
     Active Substance: PREGABALIN
     Dosage: 2 DF, BID
     Dates: end: 201609
  9. CELECOXIB. [Concomitant]
     Active Substance: CELECOXIB
     Dosage: 1 DF, BID
  10. FAMOTIDINE. [Concomitant]
     Active Substance: FAMOTIDINE
     Dosage: 1 DF, BID
  11. OXYCONTIN [Concomitant]
     Active Substance: OXYCODONE HYDROCHLORIDE
     Dosage: 1 DF, BID
  12. NOVAMIN [Concomitant]
     Dosage: 1 DF, TID
  13. COCARL [Concomitant]
     Active Substance: ACETAMINOPHEN
     Dosage: 4 DF, QID

REACTIONS (15)
  - Hormone-refractory prostate cancer [Fatal]
  - Myeloblast present [Not Recovered/Not Resolved]
  - Cancer pain [Not Recovered/Not Resolved]
  - Anaemia [Not Recovered/Not Resolved]
  - Malaise [Recovered/Resolved]
  - Pancytopenia [Fatal]
  - Neutrophil count decreased [Recovered/Resolved]
  - Bone marrow failure [Unknown]
  - Decreased appetite [Recovered/Resolved]
  - Platelet count decreased [Not Recovered/Not Resolved]
  - Dyspnoea [Recovered/Resolved]
  - C-reactive protein increased [Not Recovered/Not Resolved]
  - Pyrexia [Recovered/Resolved]
  - Febrile neutropenia [Recovering/Resolving]
  - White blood cell count decreased [Not Recovered/Not Resolved]

NARRATIVE: CASE EVENT DATE: 20160906
